FAERS Safety Report 9762024 (Version 1)
Quarter: 2013Q4

REPORT INFORMATION
  Report Type: Spontaneous
  Country: US (occurrence: US)
  Receive Date: 20131216
  Receipt Date: 20131216
  Transmission Date: 20140711
  Serious: No
  Sender: FDA-Public Use
  Company Number: US-BIOGENIDEC-2013BI103947

PATIENT
  Age: 58 Year
  Sex: Female

DRUGS (7)
  1. TECFIDERA [Suspect]
     Indication: MULTIPLE SCLEROSIS
     Route: 048
     Dates: start: 20130729
  2. AMPYRA [Concomitant]
  3. EFFEXOR [Concomitant]
  4. PRAVACHOL [Concomitant]
  5. PROVIGIL [Concomitant]
  6. VALTREX [Concomitant]
  7. ZOLOFT [Concomitant]

REACTIONS (2)
  - Fatigue [Unknown]
  - Dizziness [Unknown]
